FAERS Safety Report 8402020-9 (Version None)
Quarter: 2012Q2

REPORT INFORMATION
  Report Type: 
  Country: None (occurrence: None)
  Receive Date: 20120601
  Receipt Date: 20120530
  Transmission Date: 20120825
  Serious: Yes (Other)
  Sender: FDA-Public Use
  Company Number: US-PFIZER INC-2012077541

PATIENT
  Sex: Female
  Weight: 54.4 kg

DRUGS (3)
  1. PREMARIN [Suspect]
     Indication: OSTEOPOROSIS
  2. PREMARIN [Suspect]
     Indication: HOT FLUSH
     Dosage: 0.3 MG, 1X/DAY
     Route: 048
  3. SYNTHROID [Concomitant]
     Indication: HYPOTHYROIDISM
     Dosage: UNK

REACTIONS (2)
  - FOOT FRACTURE [None]
  - NASOPHARYNGITIS [None]
